FAERS Safety Report 15098462 (Version 3)
Quarter: 2018Q3

REPORT INFORMATION
  Report Type: Report from Study
  Country: US (occurrence: US)
  Receive Date: 20180702
  Receipt Date: 20180801
  Transmission Date: 20181010
  Serious: No
  Sender: FDA-Public Use
  Company Number: US-AMGEN-USASP2018087477

PATIENT
  Age: 70 Year
  Sex: Female

DRUGS (4)
  1. HYDROCORTISONE. [Suspect]
     Active Substance: HYDROCORTISONE
     Indication: INJECTION SITE PRURITUS
  2. ENBREL [Suspect]
     Active Substance: ETANERCEPT
     Dosage: 50 MG, QWK
     Route: 065
  3. HYDROCORTISONE. [Suspect]
     Active Substance: HYDROCORTISONE
     Indication: INJECTION SITE SWELLING
     Dosage: UNK
     Route: 065
     Dates: start: 20180702, end: 20180702
  4. ENBREL [Suspect]
     Active Substance: ETANERCEPT
     Indication: PSORIATIC ARTHROPATHY
     Dosage: 50 MG, QWK
     Route: 065
     Dates: start: 2018

REACTIONS (8)
  - Wrong technique in product usage process [Unknown]
  - Pruritus [Recovered/Resolved]
  - Injection site pain [Unknown]
  - Fatigue [Unknown]
  - Injection site pruritus [Unknown]
  - Injection site erythema [Unknown]
  - Injection site swelling [Unknown]
  - Injection site warmth [Unknown]

NARRATIVE: CASE EVENT DATE: 2018
